FAERS Safety Report 13241354 (Version 2)
Quarter: 2018Q2

REPORT INFORMATION
  Report Type: Report from Study
  Country: BR (occurrence: BR)
  Receive Date: 20170216
  Receipt Date: 20180501
  Transmission Date: 20180711
  Serious: Yes (Hospitalization, Other)
  Sender: FDA-Public Use
  Company Number: PHHY2017BR021207

PATIENT
  Age: 97 Year
  Sex: Female
  Weight: 70 kg

DRUGS (4)
  1. FORASEQ [Suspect]
     Active Substance: BUDESONIDE\FORMOTEROL FUMARATE
     Indication: BRONCHIAL OEDEMA
     Dosage: (FORMOTEROL FUMARATE 12 UG, BUDESONIDE 400 UG)
     Route: 065
     Dates: start: 2014
  2. TYLEX [Concomitant]
     Active Substance: ACETAMINOPHEN\CODEINE PHOSPHATE
     Indication: OSTEOARTHRITIS
     Dosage: 30 MG, UNK
     Route: 065
  3. FORASEQ [Suspect]
     Active Substance: BUDESONIDE\FORMOTEROL FUMARATE
     Indication: THROMBOSIS
     Dosage: 1 DF (FORMOTEROL FUMARATE 12 UG, BUDESONIDE 400 UG), TID
     Route: 055
     Dates: start: 20170124
  4. FORASEQ [Suspect]
     Active Substance: BUDESONIDE\FORMOTEROL FUMARATE
     Indication: PULMONARY EMBOLISM

REACTIONS (17)
  - Bronchitis [Recovering/Resolving]
  - Thrombosis [Recovering/Resolving]
  - Asthma [Unknown]
  - Arthralgia [Unknown]
  - Product use in unapproved indication [Unknown]
  - Pneumonia [Recovering/Resolving]
  - Bronchial wall thickening [Unknown]
  - Malaise [Unknown]
  - Dyspnoea [Recovering/Resolving]
  - Wheezing [Unknown]
  - Bronchial oedema [Unknown]
  - Skin wound [Recovered/Resolved]
  - Lung disorder [Recovering/Resolving]
  - Gait inability [Unknown]
  - Condition aggravated [Unknown]
  - Hyperaesthesia [Recovered/Resolved]
  - Dysstasia [Unknown]

NARRATIVE: CASE EVENT DATE: 2017
